FAERS Safety Report 10874560 (Version 1)
Quarter: 2015Q1

REPORT INFORMATION
  Report Type: Spontaneous
  Country: US (occurrence: US)
  Receive Date: 20150227
  Receipt Date: 20150227
  Transmission Date: 20150721
  Serious: No
  Sender: FDA-Public Use
  Company Number: US-GLAXOSMITHKLINE-US2015008837

PATIENT
  Sex: Female

DRUGS (12)
  1. LEVOTHYROXINE [Concomitant]
     Active Substance: LEVOTHYROXINE
  2. LAMICTAL [Suspect]
     Active Substance: LAMOTRIGINE
     Dosage: 100 MG, TID
  3. LAMICTAL [Suspect]
     Active Substance: LAMOTRIGINE
     Indication: GENERALISED TONIC-CLONIC SEIZURE
     Dosage: UNK
     Route: 048
  4. TOPAMAX [Suspect]
     Active Substance: TOPIRAMATE
     Indication: SEIZURE
     Dosage: 100 MG, BID
     Route: 048
  5. TOPAMAX [Suspect]
     Active Substance: TOPIRAMATE
     Dosage: 150 UNK, UNK
  6. CALCIUM CITRATE [Concomitant]
     Active Substance: CALCIUM CITRATE
  7. VITAMIN D [Concomitant]
     Active Substance: CHOLECALCIFEROL
  8. VIMPAT [Suspect]
     Active Substance: LACOSAMIDE
     Indication: SEIZURE
     Dosage: 50 MG, BID
     Route: 048
     Dates: start: 2014
  9. IRON SUPPLEMENT [Concomitant]
     Active Substance: IRON
  10. MELOXICAM. [Concomitant]
     Active Substance: MELOXICAM
  11. SERTRALINE [Concomitant]
     Active Substance: SERTRALINE HYDROCHLORIDE
  12. VITAMIN B12 [Concomitant]
     Active Substance: CYANOCOBALAMIN

REACTIONS (8)
  - Laceration [Recovered/Resolved with Sequelae]
  - Skin discolouration [Recovered/Resolved with Sequelae]
  - Fall [Recovered/Resolved with Sequelae]
  - Injury [Recovered/Resolved with Sequelae]
  - Upper limb fracture [Recovered/Resolved with Sequelae]
  - Drug ineffective [Unknown]
  - Contusion [Recovered/Resolved with Sequelae]
  - Amnesia [Not Recovered/Not Resolved]
